FAERS Safety Report 9496835 (Version 1)
Quarter: 2013Q3

REPORT INFORMATION
  Report Type: Spontaneous
  Country: US (occurrence: None)
  Receive Date: 20130903
  Receipt Date: 20130903
  Transmission Date: 20140515
  Serious: Yes (Other)
  Sender: FDA-Public Use
  Company Number: None

PATIENT
  Age: 49 Year
  Sex: 0
  Weight: 102.06 kg

DRUGS (1)
  1. IMIPRAMINE [Suspect]
     Indication: ANXIETY
     Route: 048

REACTIONS (5)
  - Dyspnoea [None]
  - Chest pain [None]
  - Dysarthria [None]
  - Jaw disorder [None]
  - Feeling abnormal [None]
